FAERS Safety Report 8151222-8 (Version None)
Quarter: 2012Q1

REPORT INFORMATION
  Report Type: 
  Country: None (occurrence: None)
  Receive Date: 20120220
  Receipt Date: 20120215
  Transmission Date: 20120608
  Serious: Yes (Death, Other)
  Sender: FDA-Public Use
  Company Number: PHHY2012IT014075

PATIENT
  Age: 49 Year
  Sex: Female

DRUGS (1)
  1. OXALIPLATIN [Suspect]
     Indication: COLORECTAL CANCER
     Dosage: UNK
     Dates: start: 20090101

REACTIONS (11)
  - NEOPLASM MALIGNANT [None]
  - HAEMOLYTIC URAEMIC SYNDROME [None]
  - BACK PAIN [None]
  - METASTASES TO LUNG [None]
  - ANAEMIA [None]
  - THROMBOCYTOPENIA [None]
  - HAEMOLYSIS [None]
  - RENAL FAILURE ACUTE [None]
  - GASTROINTESTINAL HAEMORRHAGE [None]
  - HAEMATURIA [None]
  - HEPATIC FAILURE [None]
